FAERS Safety Report 24152822 (Version 1)
Quarter: 2024Q3

REPORT INFORMATION
  Report Type: Spontaneous
  Country: US (occurrence: US)
  Receive Date: 20240730
  Receipt Date: 20240730
  Transmission Date: 20241017
  Serious: No
  Sender: SANOFI AVENTIS
  Company Number: US-SANOFI-02150039

PATIENT
  Age: 35 Year
  Sex: Female

DRUGS (1)
  1. TUBERSOL [Suspect]
     Active Substance: TUBERCULIN PURIFIED PROTEIN DERIVATIVE
     Indication: Skin test
     Dosage: 0.1 ML, TOTAL
     Route: 023
     Dates: start: 20240722, end: 20240722

REACTIONS (1)
  - Poor quality product administered [Unknown]

NARRATIVE: CASE EVENT DATE: 20240722
